FAERS Safety Report 8622092-6 (Version None)
Quarter: 2012Q3

REPORT INFORMATION
  Report Type: 
  Country: None (occurrence: None)
  Receive Date: 20120826
  Receipt Date: 20120816
  Transmission Date: 20120928
  Serious: No
  Sender: FDA-Public Use
  Company Number: US-009507513-1208USA007687

PATIENT

DRUGS (3)
  1. FOSAMAX [Suspect]
     Dosage: UNK
     Route: 048
  2. PRINIVIL [Suspect]
     Route: 048
  3. LEVOTHYROXINE SODIUM [Concomitant]

REACTIONS (1)
  - BONE DENSITY DECREASED [None]
